FAERS Safety Report 18689324 (Version 1)
Quarter: 2020Q4

REPORT INFORMATION
  Report Type: Report from Study
  Country: GB (occurrence: GB)
  Receive Date: 20201231
  Receipt Date: 20201231
  Transmission Date: 20210114
  Serious: Yes (Hospitalization, Other)
  Sender: FDA-Public Use
  Company Number: GB-SAMSUNG BIOEPIS-SB-2020-38252

PATIENT
  Age: 62 Year
  Sex: Female

DRUGS (1)
  1. BENEPALI [Suspect]
     Active Substance: ETANERCEPT
     Indication: RHEUMATOID ARTHRITIS
     Route: 058
     Dates: start: 20200923

REACTIONS (11)
  - Ill-defined disorder [Unknown]
  - Device issue [Unknown]
  - Eyelid ptosis [Unknown]
  - Rheumatoid arthritis [Unknown]
  - Dizziness [Unknown]
  - Illness [Unknown]
  - Wrong technique in product usage process [Unknown]
  - Drug ineffective [Unknown]
  - Osteoarthritis [Unknown]
  - Injection site bruising [Unknown]
  - Visual impairment [Unknown]
